FAERS Safety Report 12503783 (Version 1)
Quarter: 2016Q2

REPORT INFORMATION
  Report Type: Spontaneous
  Country: US (occurrence: None)
  Receive Date: 20160627
  Receipt Date: 20160627
  Transmission Date: 20160815
  Serious: Yes (Other)
  Sender: FDA-Public Use
  Company Number: None

PATIENT
  Age: 67 Year
  Sex: Female
  Weight: 48.99 kg

DRUGS (1)
  1. ALENDRONATE SODIUM TABLETS, USP, 70 MG CIPLA USA [Suspect]
     Active Substance: ALENDRONATE SODIUM
     Indication: OSTEOPOROSIS
     Route: 048
     Dates: start: 20160523, end: 20160530

REACTIONS (14)
  - Arthropathy [None]
  - Abasia [None]
  - Blood magnesium increased [None]
  - Therapy cessation [None]
  - Gait disturbance [None]
  - Movement disorder [None]
  - Impaired driving ability [None]
  - Arthralgia [None]
  - Facial pain [None]
  - No therapeutic response [None]
  - Pain in extremity [None]
  - Neck pain [None]
  - Body temperature increased [None]
  - C-reactive protein increased [None]

NARRATIVE: CASE EVENT DATE: 20160531
